FAERS Safety Report 23925452 (Version 1)
Quarter: 2024Q2

REPORT INFORMATION
  Report Type: Spontaneous
  Country: US (occurrence: US)
  Receive Date: 20240531
  Receipt Date: 20240531
  Transmission Date: 20240716
  Serious: No
  Sender: FDA-Public Use
  Company Number: US-TEVA-VS-3201731

PATIENT
  Sex: Female

DRUGS (2)
  1. UZEDY [Suspect]
     Active Substance: RISPERIDONE
     Indication: Product used for unknown indication
     Route: 065
  2. BENZTROPINE [Concomitant]
     Active Substance: BENZTROPINE

REACTIONS (4)
  - Dizziness [Unknown]
  - Drooling [Unknown]
  - Tremor [Unknown]
  - Dysstasia [Unknown]
